FAERS Safety Report 11314306 (Version 1)
Quarter: 2015Q3

REPORT INFORMATION
  Report Type: Spontaneous
  Country: RU (occurrence: RU)
  Receive Date: 20150727
  Receipt Date: 20150727
  Transmission Date: 20151125
  Serious: Yes (Hospitalization)
  Sender: FDA-Public Use
  Company Number: RU-VIIV HEALTHCARE LIMITED-RU2015GSK105655

PATIENT
  Sex: Female

DRUGS (3)
  1. ZIDOVUDINE. [Suspect]
     Active Substance: ZIDOVUDINE
     Indication: HIV INFECTION
     Dosage: UNK
  2. LAMIVUDINE. [Suspect]
     Active Substance: LAMIVUDINE
     Indication: HIV INFECTION
     Dosage: UNK
  3. NEVIRAPIN [Suspect]
     Active Substance: NEVIRAPINE
     Indication: HIV INFECTION
     Dosage: UNK

REACTIONS (13)
  - Neck pain [Unknown]
  - Vomiting [Unknown]
  - Malaise [Unknown]
  - Renal pain [Unknown]
  - Rash [Unknown]
  - Dyspraxia [Unknown]
  - Eye movement disorder [Unknown]
  - Nausea [Unknown]
  - Face oedema [Unknown]
  - Pyrexia [Unknown]
  - Oedema peripheral [Unknown]
  - Headache [Unknown]
  - Chest pain [Unknown]
